FAERS Safety Report 21317927 (Version 1)
Quarter: 2022Q3

REPORT INFORMATION
  Report Type: Spontaneous
  Country: US (occurrence: US)
  Receive Date: 20220911
  Receipt Date: 20220911
  Transmission Date: 20221027
  Serious: No
  Sender: FDA-Public Use
  Company Number: US-SANOFI-01247027

PATIENT
  Age: 75 Year
  Sex: Male

DRUGS (4)
  1. TOUJEO [Suspect]
     Active Substance: INSULIN GLARGINE
     Indication: Type 2 diabetes mellitus
     Dosage: 80 IU, QD
     Dates: start: 202201
  2. TOUJEO [Suspect]
     Active Substance: INSULIN GLARGINE
     Dosage: 78 IU QD
  3. NOVOLOG [Concomitant]
     Active Substance: INSULIN ASPART
  4. VICTOZA [Concomitant]
     Active Substance: LIRAGLUTIDE

REACTIONS (5)
  - Glomerular filtration rate decreased [Unknown]
  - Blood glucose abnormal [Unknown]
  - Blood glucose increased [Recovering/Resolving]
  - Confusional state [Unknown]
  - Intentional product misuse [Unknown]
